FAERS Safety Report 6564583-8 (Version None)
Quarter: 2010Q1

REPORT INFORMATION
  Report Type: 
  Country: None (occurrence: None)
  Receive Date: 20100201
  Receipt Date: 20100120
  Transmission Date: 20100710
  Serious: Yes (Death)
  Sender: FDA-Public Use
  Company Number: PHHY2009ZA54957

PATIENT
  Sex: Female
  Weight: 52 kg

DRUGS (7)
  1. GLEEVEC [Suspect]
     Indication: BLAST CRISIS IN MYELOGENOUS LEUKAEMIA
     Dosage: 600 MG DAILY
     Route: 048
  2. GLEEVEC [Suspect]
     Dosage: 400 MG, UNK
     Route: 048
  3. MICROGESIC [Concomitant]
     Indication: PAIN
     Dosage: 2 TABLETS THREE TIMES DAILY
  4. MAXOLON [Concomitant]
     Indication: NAUSEA
     Dosage: UNK
  5. MAXOLON [Concomitant]
     Indication: VOMITING
  6. TAGAMET [Concomitant]
     Indication: DYSPEPSIA
     Dosage: 400 MG, BID
  7. TAGAMET [Concomitant]
     Indication: EPIGASTRIC DISCOMFORT

REACTIONS (1)
  - DEATH [None]
